FAERS Safety Report 11821883 (Version 1)
Quarter: 2015Q4

REPORT INFORMATION
  Report Type: Spontaneous
  Country: US (occurrence: US)
  Receive Date: 20151210
  Receipt Date: 20151210
  Transmission Date: 20160305
  Serious: No
  Sender: FDA-Public Use
  Company Number: US-JNJFOC-20150906110

PATIENT
  Age: 77 Year
  Sex: Female

DRUGS (7)
  1. VITAMINS NOS [Concomitant]
     Active Substance: VITAMINS
  2. OMEPRAZOLE. [Concomitant]
     Active Substance: OMEPRAZOLE
  3. IMBRUVICA [Suspect]
     Active Substance: IBRUTINIB
     Indication: CHRONIC LYMPHOCYTIC LEUKAEMIA
     Route: 048
     Dates: start: 20150723
  4. FASLODEX [Concomitant]
     Active Substance: FULVESTRANT
  5. CELEBREX [Concomitant]
     Active Substance: CELECOXIB
  6. IMBRUVICA [Suspect]
     Active Substance: IBRUTINIB
     Indication: CHRONIC LYMPHOCYTIC LEUKAEMIA
     Route: 048
     Dates: start: 20150706, end: 20150717
  7. CALCIUM [Concomitant]
     Active Substance: CALCIUM

REACTIONS (13)
  - Night sweats [Unknown]
  - Headache [Unknown]
  - Pain in extremity [Recovered/Resolved]
  - Diarrhoea [Recovered/Resolved]
  - Contusion [Recovered/Resolved]
  - Hot flush [Unknown]
  - Joint swelling [Recovered/Resolved]
  - Gait disturbance [Unknown]
  - Stomatitis [Recovered/Resolved]
  - Fatigue [Unknown]
  - Dizziness [Unknown]
  - Back pain [Unknown]
  - Musculoskeletal pain [Unknown]

NARRATIVE: CASE EVENT DATE: 2015
